FAERS Safety Report 5164730-9 (Version None)
Quarter: 2006Q4

REPORT INFORMATION
  Report Type: 
  Country: None (occurrence: None)
  Receive Date: 20061205
  Receipt Date: 20061130
  Transmission Date: 20070319
  Serious: Yes (Hospitalization)
  Sender: FDA-Public Use
  Company Number: US-GLAXOSMITHKLINE-A0630308A

PATIENT
  Age: 80 Year
  Sex: Male
  Weight: 78.4 kg

DRUGS (7)
  1. DUTASTERIDE [Suspect]
     Indication: PROSTATE CANCER
     Dosage: .5MG PER DAY
     Route: 048
     Dates: start: 20061116
  2. KETOCONAZOLE [Suspect]
     Indication: PROSTATE CANCER
     Dosage: 200MG THREE TIMES PER DAY
     Route: 048
     Dates: start: 20061116, end: 20061128
  3. HYDROCORTISONE [Suspect]
     Indication: PROSTATE CANCER
     Dosage: 40MG PER DAY
     Route: 048
     Dates: start: 20061116
  4. COUMADIN [Concomitant]
     Dosage: 5MG PER DAY
     Route: 048
     Dates: start: 20060815
  5. ATENOLOL [Concomitant]
     Dosage: 25MG PER DAY
     Route: 048
     Dates: start: 20060815
  6. LANOXIN [Concomitant]
     Dosage: .25MG PER DAY
     Route: 048
     Dates: start: 20060815
  7. FLOMAX [Concomitant]
     Route: 048

REACTIONS (4)
  - CONFUSIONAL STATE [None]
  - HEPATIC ENZYME INCREASED [None]
  - LIVER FUNCTION TEST ABNORMAL [None]
  - SPEECH DISORDER [None]
